FAERS Safety Report 9688636 (Version 1)
Quarter: 2013Q4

REPORT INFORMATION
  Report Type: Spontaneous
  Country: AU (occurrence: None)
  Receive Date: 20131113
  Receipt Date: 20131113
  Transmission Date: 20140711
  Serious: Yes (Death)
  Sender: FDA-Public Use
  Company Number: 2013P1020693

PATIENT
  Age: 15 Year
  Sex: Male

DRUGS (1)
  1. VANCOMYCIN [Suspect]
     Indication: BACTERAEMIA
     Route: 042

REACTIONS (5)
  - Hypotension [None]
  - Acute hepatic failure [None]
  - Haemofiltration [None]
  - Hepatic necrosis [None]
  - Drug reaction with eosinophilia and systemic symptoms [None]
